FAERS Safety Report 10668784 (Version 3)
Quarter: 2015Q1

REPORT INFORMATION
  Report Type: Spontaneous
  Country: JP (occurrence: JP)
  Receive Date: 20141222
  Receipt Date: 20150326
  Transmission Date: 20150720
  Serious: Yes (Death, Life-Threatening, Hospitalization)
  Sender: FDA-Public Use
  Company Number: JP-PFIZER INC-2014167775

PATIENT
  Age: 5 Decade
  Sex: Male

DRUGS (4)
  1. SUTENT [Suspect]
     Active Substance: SUNITINIB MALATE
     Indication: METASTATIC RENAL CELL CARCINOMA
     Dosage: 37.5 MG, DAILY CYCLE OF TWO-WEEK ADMINISTRATION FOLLOWED BY ONE-WEEK REST
     Route: 048
  2. SUTENT [Suspect]
     Active Substance: SUNITINIB MALATE
     Dosage: 37.5 MG, DAILY CYCLE OF 5 ON 2 OFF
     Route: 048
  3. SUTENT [Suspect]
     Active Substance: SUNITINIB MALATE
     Dosage: 37.5 MG, DAILY 4 DAYS ON AND 3 DAYS OFF
  4. SUTENT [Suspect]
     Active Substance: SUNITINIB MALATE
     Dosage: 50 MG, DAILY
     Route: 048

REACTIONS (8)
  - Weight decreased [Unknown]
  - Performance status decreased [Not Recovered/Not Resolved]
  - Disease progression [Fatal]
  - Malaise [Recovering/Resolving]
  - Decreased appetite [Not Recovered/Not Resolved]
  - Nausea [Unknown]
  - Cachexia [Not Recovered/Not Resolved]
  - Metastatic renal cell carcinoma [Fatal]
